FAERS Safety Report 9996312 (Version 1)
Quarter: 2014Q1

REPORT INFORMATION
  Report Type: Spontaneous
  Country: US (occurrence: None)
  Receive Date: 20140310
  Receipt Date: 20140310
  Transmission Date: 20141002
  Serious: No
  Sender: FDA-Public Use
  Company Number: None

PATIENT
  Age: 80 Year
  Sex: Female

DRUGS (1)
  1. METOPROLOL 25 MG TABLET [Suspect]
     Indication: AORTIC VALVE REPLACEMENT
     Dosage: ONE TABLET TWICE DAILY TAKEN BY MOUTH
     Route: 048
     Dates: start: 20051205

REACTIONS (4)
  - Dyspnoea [None]
  - Fatigue [None]
  - Haemorrhage [None]
  - Contusion [None]
